FAERS Safety Report 14234783 (Version 1)
Quarter: 2017Q4

REPORT INFORMATION
  Report Type: Spontaneous
  Country: US (occurrence: None)
  Receive Date: 20171128
  Receipt Date: 20171128
  Transmission Date: 20180321
  Serious: Yes (Other)
  Sender: FDA-Public Use
  Company Number: None

PATIENT
  Age: 64 Year
  Sex: Male
  Weight: 122.47 kg

DRUGS (2)
  1. DULOXETINE GENERIC 20 MG [Suspect]
     Active Substance: DULOXETINE
     Indication: PAIN
     Dosage: 20 MG 2 PILLS 3 TIMES DAILY BY MOUTH
     Route: 048
     Dates: start: 2010, end: 2012
  2. DULOXETINE GENERIC 20 MG [Suspect]
     Active Substance: DULOXETINE
     Indication: DEPRESSION
     Dosage: 20 MG 2 PILLS 3 TIMES DAILY BY MOUTH
     Route: 048
     Dates: start: 2010, end: 2012

REACTIONS (4)
  - Anger [None]
  - Irritability [None]
  - Anxiety [None]
  - Agitation [None]

NARRATIVE: CASE EVENT DATE: 2010
